FAERS Safety Report 4781165-9 (Version None)
Quarter: 2005Q3

REPORT INFORMATION
  Report Type: 
  Country: None (occurrence: None)
  Receive Date: 20050926
  Receipt Date: 20050909
  Transmission Date: 20060218
  Serious: Yes (Death)
  Sender: FDA-Public Use
  Company Number: DSA_27086_2005

PATIENT
  Age: 51 Year
  Sex: Female

DRUGS (5)
  1. LORAZEPAM [Suspect]
     Dosage: DF
  2. MIRTAZAPINE [Suspect]
     Dosage: DF
  3. ZOPLICONE [Suspect]
     Dosage: DF DAILY
  4. CHLORPROMAZINE [Suspect]
     Dosage: DF
  5. ALCOHOL [Suspect]
     Dosage: DF

REACTIONS (1)
  - DEATH [None]
